FAERS Safety Report 10242294 (Version 1)
Quarter: 2014Q2

REPORT INFORMATION
  Report Type: Spontaneous
  Country: ES (occurrence: ES)
  Receive Date: 20140617
  Receipt Date: 20140617
  Transmission Date: 20141212
  Serious: Yes (Hospitalization)
  Sender: FDA-Public Use
  Company Number: ES-PFIZER INC-2014162576

PATIENT
  Age: 82 Year
  Sex: Female

DRUGS (8)
  1. ALDACTONE [Suspect]
     Indication: PORTAL HYPERTENSION
     Dosage: 75 MG, 1X/DAY
     Route: 048
     Dates: start: 20130202, end: 20130705
  2. SEGURIL [Interacting]
     Indication: HEPATORENAL SYNDROME
     Dosage: 60 MG, 1X/DAY
     Route: 048
     Dates: start: 20130701, end: 20130705
  3. METFORMIN [Concomitant]
     Indication: TYPE 2 DIABETES MELLITUS
     Dosage: UNK
     Route: 048
     Dates: start: 2007
  4. LISINOPRIL [Concomitant]
     Indication: HYPERTENSION
     Dosage: UNK
     Route: 048
     Dates: start: 2003
  5. INSULATARD HUMANA [Concomitant]
     Indication: TYPE 2 DIABETES MELLITUS
     Dosage: 42 IU, 2X/DAY
     Route: 058
  6. NOCTAMID [Concomitant]
     Indication: INSOMNIA
     Dosage: UNK
     Route: 048
     Dates: start: 2012
  7. LEVOTHROID [Concomitant]
     Indication: HYPOTHYROIDISM
     Dosage: 100 UG, 1X/DAY
     Route: 048
     Dates: start: 1993
  8. SUMIAL [Concomitant]
     Indication: PORTAL HYPERTENSION
     Dosage: 10 MG, 1X/DAY
     Route: 048
     Dates: start: 20130202

REACTIONS (3)
  - Hyponatraemia [Recovered/Resolved]
  - Disorientation [Recovered/Resolved]
  - Drug interaction [Recovered/Resolved]
